FAERS Safety Report 7516648-1 (Version None)
Quarter: 2011Q2

REPORT INFORMATION
  Report Type: 
  Country: None (occurrence: None)
  Receive Date: 20110523
  Receipt Date: 20110512
  Transmission Date: 20111010
  Serious: Yes (Death)
  Sender: FDA-Public Use
  Company Number: JPI-P-015064

PATIENT
  Age: 56 Year
  Sex: Male

DRUGS (2)
  1. XYREM [Suspect]
     Indication: PRODUCT USED FOR UNKNOWN INDICATION
     Dosage: 3.5 GM (1.75 GM, 2 IN 1 D), ORAL 8 GM (4 GM, 2 IN 1 D), ORAL
     Route: 048
     Dates: start: 20021115
  2. XYREM [Suspect]
     Indication: PRODUCT USED FOR UNKNOWN INDICATION
     Dosage: 3.5 GM (1.75 GM, 2 IN 1 D), ORAL 8 GM (4 GM, 2 IN 1 D), ORAL
     Route: 048
     Dates: start: 20031215, end: 20040702

REACTIONS (1)
  - DEATH [None]
